FAERS Safety Report 5214772-X (Version None)
Quarter: 2007Q1

REPORT INFORMATION
  Report Type: 
  Country: None (occurrence: None)
  Receive Date: 20070117
  Receipt Date: 20060110
  Transmission Date: 20070707
  Serious: Yes (Hospitalization)
  Sender: FDA-Public Use
  Company Number: WAES 0512NLD00009

PATIENT
  Age: 73 Year
  Sex: Male

DRUGS (7)
  1. COZAAR [Suspect]
     Indication: CARDIAC FAILURE CONGESTIVE
     Dosage: PO
     Route: 048
     Dates: start: 20030826
  2. BISOPROLOL FUMARATE [Concomitant]
  3. CARBASPIRIN CALCIUM [Concomitant]
  4. FUROSEMIDE [Concomitant]
  5. INSULIN [Concomitant]
  6. SIMVASTATIN [Concomitant]
  7. SPIRONOLACTONE [Concomitant]

REACTIONS (3)
  - NO THERAPEUTIC RESPONSE [None]
  - OSTEOMYELITIS [None]
  - TOE AMPUTATION [None]
